FAERS Safety Report 10063503 (Version 1)
Quarter: 2014Q2

REPORT INFORMATION
  Report Type: Spontaneous
  Country: US (occurrence: US)
  Receive Date: 20140407
  Receipt Date: 20140407
  Transmission Date: 20141212
  Serious: No
  Sender: FDA-Public Use
  Company Number: US-009507513-1404USA002554

PATIENT
  Sex: Female

DRUGS (5)
  1. ASMANEX TWISTHALER [Suspect]
     Indication: ASTHMA
     Dosage: 1 DF, BID
     Route: 055
  2. SPIRIVA [Concomitant]
  3. SYNTHROID [Concomitant]
  4. THEOPHYLLINE [Concomitant]
  5. HYGROTON [Concomitant]

REACTIONS (2)
  - Asthma [Recovering/Resolving]
  - Drug dose omission [Unknown]
